FAERS Safety Report 13366186 (Version 1)
Quarter: 2017Q1

REPORT INFORMATION
  Report Type: Spontaneous
  Country: DE (occurrence: DE)
  Receive Date: 20170323
  Receipt Date: 20170323
  Transmission Date: 20170429
  Serious: Yes (Other)
  Sender: FDA-Public Use
  Company Number: DE-BAYER-2017-054908

PATIENT
  Sex: Male

DRUGS (1)
  1. ASPIRIN PROTECT 100 MG [Suspect]
     Active Substance: ASPIRIN
     Dosage: UNK

REACTIONS (6)
  - Oropharyngeal pain [None]
  - Ear pain [None]
  - Dysphagia [None]
  - Headache [Recovering/Resolving]
  - Vertigo [None]
  - Melaena [None]
